FAERS Safety Report 9801950 (Version 2)
Quarter: 2014Q1

REPORT INFORMATION
  Report Type: Spontaneous
  Country: US (occurrence: US)
  Receive Date: 20140107
  Receipt Date: 20140212
  Transmission Date: 20141002
  Serious: No
  Sender: FDA-Public Use
  Company Number: US-009507513-1312USA012655

PATIENT
  Age: 22 Year
  Sex: Female
  Weight: 78.46 kg

DRUGS (2)
  1. NEXPLANON [Suspect]
     Dosage: 1 DF, UNK
     Route: 059
     Dates: start: 20131206, end: 20131206
  2. NEXPLANON [Suspect]
     Dosage: UNK
     Route: 059
     Dates: start: 20131206

REACTIONS (3)
  - Device difficult to use [Recovered/Resolved]
  - Needle issue [Unknown]
  - No adverse event [Unknown]
